FAERS Safety Report 15434778 (Version 2)
Quarter: 2018Q4

REPORT INFORMATION
  Report Type: Spontaneous
  Country: BR (occurrence: BR)
  Receive Date: 20180927
  Receipt Date: 20181018
  Transmission Date: 20190204
  Serious: Yes (Other)
  Sender: FDA-Public Use
  Company Number: BR-PFIZER INC-2018388403

PATIENT
  Sex: Female

DRUGS (2)
  1. LORAX [Suspect]
     Active Substance: LORAZEPAM
     Dosage: 1 MG, UNK
  2. LORAX [Suspect]
     Active Substance: LORAZEPAM
     Dosage: 2 TABLETS TO COMPLETE 2MG

REACTIONS (6)
  - Headache [Unknown]
  - Dizziness [Unknown]
  - Feeling abnormal [Unknown]
  - Blood pressure increased [Unknown]
  - Apparent death [Unknown]
  - Drug dependence [Unknown]
